FAERS Safety Report 20738891 (Version 2)
Quarter: 2022Q2

REPORT INFORMATION
  Report Type: Spontaneous
  Country: DE (occurrence: DE)
  Receive Date: 20220422
  Receipt Date: 20220615
  Transmission Date: 20220721
  Serious: Yes (Hospitalization)
  Sender: FDA-Public Use
  Company Number: DE-SA-SAC20220419001406

PATIENT
  Age: 59 Year

DRUGS (1)
  1. LANTUS [Suspect]
     Active Substance: INSULIN GLARGINE
     Dosage: 16 IU, QD

REACTIONS (3)
  - Dysuria [Unknown]
  - Muscle spasms [Unknown]
  - Haematuria [Unknown]

NARRATIVE: CASE EVENT DATE: 20220411
